FAERS Safety Report 7099244-2 (Version None)
Quarter: 2010Q4

REPORT INFORMATION
  Report Type: 
  Country: None (occurrence: None)
  Receive Date: 20101104
  Receipt Date: 20101020
  Transmission Date: 20110411
  Serious: Yes (Life-Threatening, Hospitalization, Other)
  Sender: FDA-Public Use
  Company Number: APP201000866

PATIENT
  Age: 68 Year
  Sex: Female
  Weight: 71.2147 kg

DRUGS (18)
  1. HEPARIN SODIUM INJECTION [Suspect]
     Indication: CORONARY ARTERY BYPASS
     Dosage: IN 60 ML 0.9% SODIUM CHLORIDE
     Dates: start: 20080109, end: 20080109
  2. HEPARIN SODIUM INJECTION [Suspect]
     Indication: CORONARY ARTERY BYPASS
     Dosage: IN 60 ML 0.9% SODIUM CHLORIDE
     Dates: start: 20080109, end: 20080109
  3. HEPARIN SODIUM INJECTION [Suspect]
     Indication: CORONARY ARTERY BYPASS
     Dosage: IN 60 ML 0.9% SODIUM CHLORIDE
     Dates: start: 20080109, end: 20080109
  4. CLOPIDEGREL [Suspect]
     Indication: PRODUCT USED FOR UNKNOWN INDICATION
  5. PAPAVERINE (PAPAVERINE) [Concomitant]
  6. CEFAZOLIN [Concomitant]
  7. VANCOMYCIN [Concomitant]
  8. THROMBIN LOCAL SOLUTION [Concomitant]
  9. DOBUTAMINE (DOBUTAMINE) [Concomitant]
  10. HETASTARCH (HETASTARCH) [Concomitant]
  11. FAMOTIDINE [Concomitant]
  12. SURGIFOAM (ABSORBABLE GELATIN SPONGE) [Concomitant]
  13. LISINOPRIL [Concomitant]
  14. AMLODIPINE [Concomitant]
  15. HYDRALAZINE HCL [Concomitant]
  16. LOVASTATIN [Concomitant]
  17. ASPIRIN [Concomitant]
  18. RANITIDINE [Concomitant]

REACTIONS (16)
  - ANAEMIA [None]
  - ANAPHYLACTIC REACTION [None]
  - CARDIOGENIC SHOCK [None]
  - CLOSTRIDIUM DIFFICILE COLITIS [None]
  - DIABETES MELLITUS [None]
  - ENCEPHALOPATHY [None]
  - HAEMODIALYSIS [None]
  - ISCHAEMIC CEREBRAL INFARCTION [None]
  - KLEBSIELLA INFECTION [None]
  - LACTIC ACIDOSIS [None]
  - PLEURAL EFFUSION [None]
  - PULMONARY OEDEMA [None]
  - RENAL FAILURE ACUTE [None]
  - RESPIRATORY FAILURE [None]
  - THROMBOTIC THROMBOCYTOPENIC PURPURA [None]
  - URINARY TRACT INFECTION BACTERIAL [None]
